FAERS Safety Report 17773064 (Version 1)
Quarter: 2020Q2

REPORT INFORMATION
  Report Type: Report from Study
  Country: US (occurrence: US)
  Receive Date: 20200512
  Receipt Date: 20200512
  Transmission Date: 20200714
  Serious: Yes (Hospitalization)
  Sender: FDA-Public Use
  Company Number: US-ACTELION-A-NJ2018-173079

PATIENT
  Age: 27 Year
  Sex: Female
  Weight: 57.14 kg

DRUGS (9)
  1. VELETRI [Suspect]
     Active Substance: EPOPROSTENOL
     Dosage: 26 NG/KG, PER MIN
     Route: 042
  2. VELETRI [Suspect]
     Active Substance: EPOPROSTENOL
     Dosage: 19 NG/KG, PER MIN
     Route: 042
  3. VELETRI [Suspect]
     Active Substance: EPOPROSTENOL
     Indication: PULMONARY ARTERIAL HYPERTENSION
     Dosage: 23 NG/KG, PER MIN
     Route: 042
  4. VELETRI [Suspect]
     Active Substance: EPOPROSTENOL
     Dosage: 23 NG/KG, PER MIN
     Route: 042
  5. WARFARIN [Concomitant]
     Active Substance: WARFARIN
  6. ADCIRCA [Concomitant]
     Active Substance: TADALAFIL
  7. LETAIRIS [Concomitant]
     Active Substance: AMBRISENTAN
  8. VELETRI [Suspect]
     Active Substance: EPOPROSTENOL
     Dosage: 20 NG/KG, PER MIN
     Route: 042
  9. OPSUMIT [Concomitant]
     Active Substance: MACITENTAN
     Route: 048

REACTIONS (32)
  - Catheter site erythema [Recovering/Resolving]
  - Catheter site infection [Unknown]
  - Catheter site swelling [Unknown]
  - Catheter site pain [Recovering/Resolving]
  - Dyspnoea exertional [Not Recovered/Not Resolved]
  - Gastric ulcer [Unknown]
  - Haematemesis [Unknown]
  - Skin burning sensation [Unknown]
  - Catheter site induration [Unknown]
  - Catheter management [Unknown]
  - Catheter site discharge [Not Recovered/Not Resolved]
  - Catheter site dermatitis [Unknown]
  - Loss of consciousness [Unknown]
  - Diarrhoea [Unknown]
  - Erythema [Unknown]
  - Pustule [Unknown]
  - Chest pain [Unknown]
  - Malaise [Unknown]
  - Dizziness [Unknown]
  - Pain in jaw [Unknown]
  - Catheter site pruritus [Unknown]
  - Condition aggravated [Unknown]
  - Pulmonary arterial hypertension [Unknown]
  - Flushing [Unknown]
  - Fall [Unknown]
  - Thrombosis in device [Unknown]
  - Dyspnoea [Unknown]
  - Dermatitis contact [Unknown]
  - Pruritus [Unknown]
  - Vascular device infection [Unknown]
  - Acne [Unknown]
  - Fatigue [Unknown]

NARRATIVE: CASE EVENT DATE: 201908
